FAERS Safety Report 13359111 (Version 1)
Quarter: 2017Q1

REPORT INFORMATION
  Report Type: Spontaneous
  Country: PT (occurrence: PT)
  Receive Date: 20170322
  Receipt Date: 20170322
  Transmission Date: 20170429
  Serious: Yes (Hospitalization, Other)
  Sender: FDA-Public Use
  Company Number: US-ASTRAZENECA-2017SE12717

PATIENT
  Age: 3 Month
  Sex: Male

DRUGS (6)
  1. SYNAGIS [Suspect]
     Active Substance: PALIVIZUMAB
     Indication: ANTIVIRAL PROPHYLAXIS
     Dosage: 48 MG,DOSING UNKNOWN
     Route: 030
     Dates: start: 20161118, end: 20161118
  2. HEPATITIS B VACCINE [Concomitant]
     Active Substance: HEPATITIS B VIRUS VACCINE
     Indication: HEPATITIS B
     Route: 065
     Dates: start: 20161025, end: 20161025
  3. SYNAGIS [Suspect]
     Active Substance: PALIVIZUMAB
     Indication: ANTIVIRAL PROPHYLAXIS
     Dosage: DOSING UNKNOWN
     Route: 030
     Dates: start: 2017, end: 2017
  4. SYNAGIS [Suspect]
     Active Substance: PALIVIZUMAB
     Indication: ANTIVIRAL PROPHYLAXIS
     Dosage: 56 MG,DOSING UNKNOWN
     Route: 030
     Dates: start: 20170131, end: 20170131
  5. PREVENAR [Concomitant]
     Active Substance: PNEUMOCOCCAL 7-VALENT CONJUGATE VACCINE (DIPHTHERIA CRM197 PROTEIN)
     Route: 065
     Dates: start: 20161122, end: 20161122
  6. PENTAVAC [Concomitant]
     Active Substance: DIPHTHERIA AND TETANUS TOXOIDS AND ACELLULAR PERTUSSIS ADSORBED, INACTIVATED POLIOVIRUS AND HAEMOPHILUS B CONJUGATE (TETANUS TOXOID CONJUGATE) VACCINE
     Route: 065
     Dates: start: 20161121, end: 20161121

REACTIONS (4)
  - Bronchiolitis [Recovered/Resolved]
  - Rhinovirus infection [Unknown]
  - Superinfection bacterial [Recovered/Resolved]
  - Respiratory syncytial virus test positive [Recovered/Resolved]

NARRATIVE: CASE EVENT DATE: 20161222
